APPROVED DRUG PRODUCT: NAPROXEN SODIUM
Active Ingredient: NAPROXEN SODIUM
Strength: EQ 250MG BASE
Dosage Form/Route: TABLET;ORAL
Application: A078314 | Product #001 | TE Code: AB
Applicant: GLENMARK PHARMACEUTICALS LTD
Approved: Apr 27, 2007 | RLD: No | RS: No | Type: RX